FAERS Safety Report 20461119 (Version 4)
Quarter: 2022Q1

REPORT INFORMATION
  Report Type: Report from Study
  Country: US (occurrence: US)
  Receive Date: 20220211
  Receipt Date: 20220228
  Transmission Date: 20220423
  Serious: No
  Sender: FDA-Public Use
  Company Number: US-HRARD-2021000506

PATIENT
  Sex: Female

DRUGS (2)
  1. LYSODREN [Suspect]
     Active Substance: MITOTANE
     Dosage: 500 MG TID
     Route: 048
     Dates: start: 20210326
  2. METOPIRONE [Suspect]
     Active Substance: METYRAPONE
     Dosage: 3 IN THE MORNING, 2 AT NOON AND 2 IN THE AFTERNOON;  7 DAYS LATE DUE TO PRIOR AUTHORIZATION PROCESS
     Route: 048
     Dates: start: 20210402

REACTIONS (5)
  - Fatigue [Not Recovered/Not Resolved]
  - Nausea [Not Recovered/Not Resolved]
  - Decreased appetite [Not Recovered/Not Resolved]
  - Product dose omission issue [Unknown]
  - Off label use [Not Recovered/Not Resolved]

NARRATIVE: CASE EVENT DATE: 20210101
